FAERS Safety Report 10286283 (Version 1)
Quarter: 2014Q3

REPORT INFORMATION
  Report Type: Spontaneous
  Country: MA (occurrence: MA)
  Receive Date: 20140709
  Receipt Date: 20140709
  Transmission Date: 20150326
  Serious: Yes (Other)
  Sender: FDA-Public Use
  Company Number: MA-ASTRAZENECA-2014SE47626

PATIENT
  Age: 70 Year
  Sex: Male
  Weight: 83 kg

DRUGS (10)
  1. HYDROXYZINE [Concomitant]
     Active Substance: HYDROXYZINE\HYDROXYZINE HYDROCHLORIDE
     Route: 048
  2. BUPIVACAINE [Suspect]
     Active Substance: BUPIVACAINE
     Indication: ANAESTHESIA
     Dosage: FIRST INJECTION WITH 5 ML MIXTURE OF LIDOCAINE AND BUPIVACAINE
  3. LIDOCAINE. [Suspect]
     Active Substance: LIDOCAINE
     Indication: ANAESTHESIA
     Dosage: FIRST INJECTION WITH 3 ML MIXTURE OF LIDOCAINE AND BUPIVACAINE
  4. ANTIPLATELETS [Concomitant]
     Active Substance: UNSPECIFIED INGREDIENT
  5. CIPROFLOXACIN. [Concomitant]
     Active Substance: CIPROFLOXACIN
     Indication: ANTIBIOTIC PROPHYLAXIS
     Route: 048
  6. AMLODIPINE [Concomitant]
     Active Substance: AMLODIPINE BESYLATE
  7. STATINS [Concomitant]
     Active Substance: UNSPECIFIED INGREDIENT
  8. INSULIN [Concomitant]
     Active Substance: INSULIN NOS
  9. LIDOCAINE. [Suspect]
     Active Substance: LIDOCAINE
     Indication: ANAESTHESIA
     Dosage: FIRST INJECTION WITH 5 ML MIXTURE OF LIDOCAINE AND BUPIVACAINE
  10. BUPIVACAINE [Suspect]
     Active Substance: BUPIVACAINE
     Indication: ANAESTHESIA
     Dosage: FIRST INJECTION WITH 3 ML MIXTURE OF LIDOCAINE AND BUPIVACAINE

REACTIONS (2)
  - Generalised tonic-clonic seizure [Recovered/Resolved]
  - Hypertension [Recovered/Resolved]
